FAERS Safety Report 8440652-2 (Version None)
Quarter: 2012Q2

REPORT INFORMATION
  Report Type: 
  Country: None (occurrence: None)
  Receive Date: 20120615
  Receipt Date: 20120601
  Transmission Date: 20120825
  Serious: Yes (Other)
  Sender: FDA-Public Use
  Company Number: US-JNJFOC-20120602724

PATIENT
  Age: 59 Year
  Sex: Male
  Weight: 106 kg

DRUGS (10)
  1. ASPIRIN [Concomitant]
     Indication: ANTICOAGULANT THERAPY
     Route: 065
  2. GLYBURIDE [Concomitant]
     Indication: DIABETES MELLITUS
     Route: 065
  3. BENADRYL [Concomitant]
     Indication: SINUS DISORDER
     Route: 065
  4. TRAMADOL HCL [Concomitant]
     Indication: LIMB INJURY
     Route: 065
  5. DIOVAN [Concomitant]
     Indication: HYPERTENSION
     Route: 065
  6. ALLEGRA-D 12 HOUR [Concomitant]
     Indication: SINUS DISORDER
     Route: 065
  7. NICOTROL [Suspect]
     Indication: SMOKING CESSATION THERAPY
     Route: 055
  8. NICOTROL [Suspect]
     Route: 055
     Dates: start: 20120429
  9. METFORMIN HCL [Concomitant]
     Indication: DIABETES MELLITUS
     Route: 065
  10. OXYMETAZOLINE HCL [Concomitant]
     Indication: SINUS DISORDER
     Route: 065

REACTIONS (10)
  - ANXIETY [None]
  - SLEEP DISORDER [None]
  - HEADACHE [None]
  - DISTURBANCE IN ATTENTION [None]
  - DEPRESSION [None]
  - GLYCOSYLATED HAEMOGLOBIN INCREASED [None]
  - HEARING IMPAIRED [None]
  - FORMICATION [None]
  - SINUS DISORDER [None]
  - FEELING ABNORMAL [None]
